FAERS Safety Report 17994153 (Version 1)
Quarter: 2020Q3

REPORT INFORMATION
  Report Type: Spontaneous
  Country: JP (occurrence: JP)
  Receive Date: 20200708
  Receipt Date: 20200708
  Transmission Date: 20201103
  Serious: Yes (Other)
  Sender: FDA-Public Use
  Company Number: JP-AMGEN-JPNSP2020097679

PATIENT

DRUGS (1)
  1. ROMIPLATE [Suspect]
     Active Substance: ROMIPLOSTIM
     Indication: IMMUNE THROMBOCYTOPENIA
     Dosage: UNK, ONCE EVERY 2?3 WEEKS
     Route: 058

REACTIONS (2)
  - Off label use [Unknown]
  - Malignant neoplasm progression [Unknown]
